FAERS Safety Report 22275404 (Version 1)
Quarter: 2023Q2

REPORT INFORMATION
  Report Type: Spontaneous
  Country: CH (occurrence: None)
  Receive Date: 20230502
  Receipt Date: 20230502
  Transmission Date: 20230721
  Serious: Yes (Hospitalization)
  Sender: FDA-Public Use
  Company Number: 2023A100671

PATIENT
  Age: 78 Year
  Sex: Female

DRUGS (16)
  1. CRESTOR [Suspect]
     Active Substance: ROSUVASTATIN CALCIUM
     Indication: Hypercholesterolaemia
     Route: 048
     Dates: end: 20230403
  2. NEXIUM [Suspect]
     Active Substance: ESOMEPRAZOLE MAGNESIUM
     Dosage: 40.0MG UNKNOWN
     Route: 048
     Dates: start: 20230402
  3. DAFALGAN [Suspect]
     Active Substance: ACETAMINOPHEN
     Route: 048
     Dates: start: 20230329, end: 20230403
  4. ASPIRIN [Suspect]
     Active Substance: ASPIRIN
     Route: 048
  5. PREDNISONE [Suspect]
     Active Substance: PREDNISONE
     Dosage: SCH?MA D?GRESSIF EN COURS
     Route: 048
     Dates: start: 20230404
  6. BUPRENORPHINE HYDROCHLORIDE [Suspect]
     Active Substance: BUPRENORPHINE HYDROCHLORIDE
     Route: 060
     Dates: start: 20230403
  7. ARANESP [Concomitant]
     Active Substance: DARBEPOETIN ALFA
  8. CALCIPARINE [Concomitant]
     Active Substance: HEPARIN CALCIUM
  9. CALCIUM\CHOLECALCIFEROL [Concomitant]
     Active Substance: CALCIUM\CHOLECALCIFEROL
  10. PREVYMIS [Concomitant]
     Active Substance: LETERMOVIR
  11. METOPROLOL SUCCINATE [Concomitant]
     Active Substance: METOPROLOL SUCCINATE
  12. CELLCEPT [Concomitant]
     Active Substance: MYCOPHENOLATE MOFETIL
  13. SODIUM PICOSULFATE [Concomitant]
     Active Substance: SODIUM PICOSULFATE
  14. FIG FRUIT OIL\SORBITOL [Concomitant]
     Active Substance: FIG FRUIT OIL\SORBITOL
  15. TACROLIMUS [Concomitant]
     Active Substance: TACROLIMUS
  16. TORSEMIDE [Concomitant]
     Active Substance: TORSEMIDE

REACTIONS (1)
  - Mixed liver injury [Not Recovered/Not Resolved]

NARRATIVE: CASE EVENT DATE: 20230402
